FAERS Safety Report 5739268-8 (Version None)
Quarter: 2008Q2

REPORT INFORMATION
  Report Type: 
  Country: None (occurrence: None)
  Receive Date: 20080515
  Receipt Date: 20080512
  Transmission Date: 20081010
  Serious: Yes (Death, Hospitalization)
  Sender: FDA-Public Use
  Company Number: US-BRISTOL-MYERS SQUIBB COMPANY-12755260

PATIENT
  Age: 34 Year
  Sex: Female
  Weight: 168 kg

DRUGS (15)
  1. DEFINITY [Suspect]
     Indication: DYSPNOEA
     Dosage: DURATION OF THERAPY: ^MINUTES^
     Route: 042
     Dates: start: 20041011
  2. DEFINITY [Suspect]
     Indication: SHOCK
     Dosage: DURATION OF THERAPY: ^MINUTES^
     Route: 042
     Dates: start: 20041011
  3. IBUPROFEN TABLETS [Suspect]
     Route: 048
     Dates: start: 20041011, end: 20041011
  4. FAMOTIDINE INJ 10 MG/ML [Suspect]
     Route: 042
     Dates: start: 20041011, end: 20041011
  5. FERROUS SULFATE TAB [Suspect]
     Route: 048
     Dates: start: 20041011, end: 20041011
  6. AZITHROMYCIN [Suspect]
     Route: 042
     Dates: start: 20041011, end: 20041011
  7. CEFTRIAXONE SODIUM [Suspect]
     Route: 042
     Dates: start: 20041011, end: 20041011
  8. HEPARIN [Suspect]
     Dosage: DOSE VALUE:  5000 U/ML VIAL 1 ML. 5000 UNITS TID.
     Route: 058
     Dates: start: 20041011, end: 20041011
  9. LIDOCAINE AND EPINEPHRINE [Suspect]
     Route: 061
     Dates: start: 20041011, end: 20041011
  10. NOREPINEPHRINE [Suspect]
     Route: 042
     Dates: start: 20041011, end: 20041011
  11. SENOKOT [Suspect]
     Route: 048
     Dates: start: 20041011, end: 20041011
  12. VECURONIUM BROMIDE [Suspect]
     Route: 042
     Dates: start: 20041011, end: 20041011
  13. VANCOMYCIN [Suspect]
     Route: 042
     Dates: start: 20041011, end: 20041011
  14. PIPERACILLIN AND TAZOBACTAM [Suspect]
     Route: 042
     Dates: start: 20041011, end: 20041011
  15. DOPAMINE HCL [Concomitant]

REACTIONS (4)
  - BRADYCARDIA [None]
  - CARDIAC ARREST [None]
  - CARDIAC FAILURE [None]
  - PULMONARY MASS [None]
